FAERS Safety Report 6869865-8 (Version None)
Quarter: 2010Q3

REPORT INFORMATION
  Report Type: 
  Country: None (occurrence: None)
  Receive Date: 20100722
  Receipt Date: 20080827
  Transmission Date: 20110219
  Serious: No
  Sender: FDA-Public Use
  Company Number: US-PFIZER INC-2008073512

PATIENT
  Sex: Male
  Weight: 88.45 kg

DRUGS (2)
  1. CHANTIX [Suspect]
     Indication: SMOKING CESSATION THERAPY
     Dates: start: 20080806
  2. OTHER NERVOUS SYSTEM DRUGS [Concomitant]

REACTIONS (1)
  - FEELING ABNORMAL [None]
